FAERS Safety Report 4462850-5 (Version None)
Quarter: 2004Q3

REPORT INFORMATION
  Report Type: 
  Country: None (occurrence: None)
  Receive Date: 20040927
  Receipt Date: 20040906
  Transmission Date: 20050211
  Serious: Yes (Hospitalization, Other)
  Sender: FDA-Public Use
  Company Number: PHNU2004DE03173

PATIENT
  Age: 78 Year
  Sex: Female

DRUGS (1)
  1. VISUDYNE [Suspect]
     Indication: MACULAR DEGENERATION
     Dates: start: 20040521, end: 20040521

REACTIONS (5)
  - BONE PAIN [None]
  - DISEASE PROGRESSION [None]
  - EYE HAEMORRHAGE [None]
  - MACULAR DEGENERATION [None]
  - POST PROCEDURAL COMPLICATION [None]
